FAERS Safety Report 24744878 (Version 2)
Quarter: 2024Q4

REPORT INFORMATION
  Report Type: Spontaneous
  Country: GB (occurrence: GB)
  Receive Date: 20241217
  Receipt Date: 20241223
  Transmission Date: 20250115
  Serious: Yes (Hospitalization)
  Sender: MYLAN
  Company Number: GB-MYLANLABS-2024M1112572

PATIENT
  Sex: Female

DRUGS (1)
  1. CLOZARIL [Suspect]
     Active Substance: CLOZAPINE
     Indication: Product used for unknown indication
     Dosage: UNK
     Route: 048
     Dates: start: 20081103, end: 20241206

REACTIONS (5)
  - Mental impairment [Unknown]
  - Infection [Unknown]
  - Diarrhoea [Unknown]
  - Vomiting [Unknown]
  - Treatment noncompliance [Unknown]
